FAERS Safety Report 5723626-1 (Version None)
Quarter: 2008Q2

REPORT INFORMATION
  Report Type: 
  Country: None (occurrence: None)
  Receive Date: 20080429
  Receipt Date: 20080429
  Transmission Date: 20081010
  Serious: Yes (Other)
  Sender: FDA-Public Use
  Company Number: None

PATIENT
  Age: 33 Year
  Sex: Female
  Weight: 68.0396 kg

DRUGS (2)
  1. BUPROPION HCL [Suspect]
  2. WELLBUTRIN XL [Suspect]

REACTIONS (5)
  - ABDOMINAL PAIN [None]
  - DEPRESSION [None]
  - DRUG INEFFECTIVE [None]
  - PANIC ATTACK [None]
  - THERAPEUTIC RESPONSE UNEXPECTED WITH DRUG SUBSTITUTION [None]
